FAERS Safety Report 7974446-9 (Version None)
Quarter: 2011Q4

REPORT INFORMATION
  Report Type: 
  Country: None (occurrence: None)
  Receive Date: 20111213
  Receipt Date: 20111130
  Transmission Date: 20120403
  Serious: Yes (Other)
  Sender: FDA-Public Use
  Company Number: US-BAYER-2011-115787

PATIENT
  Age: 45 Year
  Sex: Female
  Weight: 63 kg

DRUGS (1)
  1. YAZ [Suspect]
     Indication: PREMENSTRUAL SYNDROME
     Dosage: UNK
     Route: 048
     Dates: start: 20090201, end: 20100101

REACTIONS (10)
  - FEAR OF DEATH [None]
  - BILIARY COLIC [None]
  - PAIN [None]
  - EMOTIONAL DISTRESS [None]
  - HYPERHIDROSIS [None]
  - DEPRESSION [None]
  - CHEST DISCOMFORT [None]
  - NAUSEA [None]
  - INJURY [None]
  - NERVOUSNESS [None]
